FAERS Safety Report 26183915 (Version 1)
Quarter: 2025Q4

REPORT INFORMATION
  Report Type: Spontaneous
  Country: US (occurrence: US)
  Receive Date: 20251222
  Receipt Date: 20251222
  Transmission Date: 20260118
  Serious: Yes (Other)
  Sender: ABBVIE
  Company Number: US-ABBVIE-6598599

PATIENT
  Sex: Male

DRUGS (2)
  1. REFRESH TEARS [Suspect]
     Active Substance: CARBOXYMETHYLCELLULOSE SODIUM
     Indication: Product used for unknown indication
     Dosage: FORM STRENGTH: 5 MILLILITRES, ROA: OPHTHALMIC
     Route: 065
  2. REFRESH TEARS [Suspect]
     Active Substance: CARBOXYMETHYLCELLULOSE SODIUM
     Indication: Product used for unknown indication
     Dosage: FORM STRENGTH UNITS: 15 MILLILITRE(S), ROA: OPHTHALMIC
     Route: 065

REACTIONS (3)
  - Keratomileusis [Unknown]
  - Poor quality product administered [Not Recovered/Not Resolved]
  - Product contamination [Not Recovered/Not Resolved]
